FAERS Safety Report 20101963 (Version 1)
Quarter: 2021Q4

REPORT INFORMATION
  Report Type: Spontaneous
  Country: US (occurrence: US)
  Receive Date: 20211123
  Receipt Date: 20211123
  Transmission Date: 20220304
  Serious: No
  Sender: FDA-Public Use
  Company Number: US-PFIZER INC-202101111553

PATIENT
  Age: 45 Year
  Sex: Female

DRUGS (1)
  1. IBRANCE [Suspect]
     Active Substance: PALBOCICLIB
     Indication: Upper respiratory tract infection
     Dosage: 125 MG
     Dates: start: 20210826

REACTIONS (2)
  - White blood cell count decreased [Unknown]
  - Off label use [Unknown]
